FAERS Safety Report 14759386 (Version 1)
Quarter: 2018Q2

REPORT INFORMATION
  Report Type: Spontaneous
  Country: US (occurrence: US)
  Receive Date: 20180413
  Receipt Date: 20180413
  Transmission Date: 20180711
  Serious: Yes (Hospitalization)
  Sender: FDA-Public Use
  Company Number: US-BRISTOL-MYERS SQUIBB COMPANY-BMS-2018-031773

PATIENT
  Sex: Female

DRUGS (1)
  1. ELIQUIS [Suspect]
     Active Substance: APIXABAN
     Indication: PULMONARY THROMBOSIS
     Dosage: UNK
     Route: 065

REACTIONS (8)
  - Dyspnoea [Unknown]
  - Asthenia [Unknown]
  - Infection [Unknown]
  - Headache [Unknown]
  - Gastrointestinal infection [Unknown]
  - Paraesthesia oral [Unknown]
  - Mass [Unknown]
  - Fatigue [Unknown]
